FAERS Safety Report 7113650-9 (Version None)
Quarter: 2010Q4

REPORT INFORMATION
  Report Type: 
  Country: None (occurrence: None)
  Receive Date: 20101119
  Receipt Date: 20101109
  Transmission Date: 20110411
  Serious: Yes (Death)
  Sender: FDA-Public Use
  Company Number: BE-WATSON-2010-14851

PATIENT
  Age: 68 Year
  Sex: Male

DRUGS (2)
  1. METHYLPREDNISOLONE [Suspect]
     Indication: PNEUMOCYSTIS JIROVECI PNEUMONIA
     Dosage: 4 MG, DAILY WITH TAPER
     Route: 065
  2. SULFAMETHOXAZOLE/TRIMETHOPRIM 400/80 (WATSON LABORATORIES) [Suspect]
     Indication: PNEUMOCYSTIS JIROVECI PNEUMONIA
     Dosage: UNK
     Route: 048

REACTIONS (2)
  - ORGANISING PNEUMONIA [None]
  - STEROID WITHDRAWAL SYNDROME [None]
